FAERS Safety Report 22146586 (Version 2)
Quarter: 2023Q2

REPORT INFORMATION
  Report Type: Report from Study
  Country: BG (occurrence: BG)
  Receive Date: 20230328
  Receipt Date: 20230404
  Transmission Date: 20230721
  Serious: Yes (Hospitalization)
  Sender: FDA-Public Use
  Company Number: BG-BAYER-2023A037731

PATIENT
  Age: 79 Year
  Sex: Female

DRUGS (1)
  1. EYLEA [Suspect]
     Active Substance: AFLIBERCEPT
     Indication: Neovascular age-related macular degeneration
     Dosage: 2 MG SOLUTION FOR INJECTION 40 MG/ML
     Route: 031
     Dates: start: 2020

REACTIONS (4)
  - Cardiac disorder [Unknown]
  - Inappropriate schedule of product administration [Not Recovered/Not Resolved]
  - Pancreatic disorder [Unknown]
  - Gallbladder disorder [Unknown]
